FAERS Safety Report 21132000 (Version 1)
Quarter: 2022Q3

REPORT INFORMATION
  Report Type: Spontaneous
  Country: US (occurrence: US)
  Receive Date: 20220726
  Receipt Date: 20220726
  Transmission Date: 20221026
  Serious: No
  Sender: FDA-Public Use
  Company Number: US-Adamas_Pharmaceuticals-USA-POI0573202200053

PATIENT
  Age: 50 Year
  Sex: Female
  Weight: 83.990 kg

DRUGS (4)
  1. DIVIGEL [Suspect]
     Active Substance: ESTRADIOL
     Indication: Hormone replacement therapy
     Route: 062
     Dates: start: 202103, end: 202106
  2. DIVIGEL [Suspect]
     Active Substance: ESTRADIOL
     Route: 062
     Dates: start: 202106
  3. VITAMIN D [Concomitant]
     Active Substance: VITAMIN D NOS
     Indication: Product used for unknown indication
  4. PROBIOTICS NOS [Concomitant]
     Active Substance: PROBIOTICS NOS
     Indication: Product used for unknown indication

REACTIONS (10)
  - Blood oestrogen increased [Unknown]
  - Alopecia [Not Recovered/Not Resolved]
  - Nasal congestion [Not Recovered/Not Resolved]
  - Dry eye [Not Recovered/Not Resolved]
  - Eye pruritus [Not Recovered/Not Resolved]
  - Nasal dryness [Not Recovered/Not Resolved]
  - Nasal pruritus [Not Recovered/Not Resolved]
  - Dry skin [Not Recovered/Not Resolved]
  - Pruritus [Not Recovered/Not Resolved]
  - Breast cyst [Not Recovered/Not Resolved]

NARRATIVE: CASE EVENT DATE: 20210901
